FAERS Safety Report 8421550-7 (Version None)
Quarter: 2012Q2

REPORT INFORMATION
  Report Type: 
  Country: None (occurrence: None)
  Receive Date: 20120608
  Receipt Date: 20120605
  Transmission Date: 20120825
  Serious: Yes (Death)
  Sender: FDA-Public Use
  Company Number: US-B.I. PHARMACEUTICALS,INC./RIDGEFIELD-2012-BP-12751BP

PATIENT
  Age: 83 Year
  Sex: Female

DRUGS (11)
  1. TERBINAFINE HCL [Concomitant]
     Dosage: 250 MG
  2. SIMVASTATIN [Concomitant]
     Dosage: 40 MG
  3. GABAPENTIN [Concomitant]
     Dosage: 600 MG
  4. GLIMEPIRIDE [Concomitant]
     Dosage: 1 MG
  5. PANTOPRAZOLE [Concomitant]
     Dosage: 40 MG
  6. SOLIFENACIN SUCCINATE [Concomitant]
     Dosage: 5 MG
  7. PRADAXA [Suspect]
     Indication: ATRIAL FIBRILLATION
     Dosage: 150 MG
     Route: 048
     Dates: start: 20120512
  8. BUMETANIDE [Concomitant]
     Dosage: 3 MG
  9. LEVAQUIN [Concomitant]
     Dosage: 250 MG
  10. SPIRONOLACTONE [Concomitant]
     Dosage: 25 MG
  11. DIGOXIN [Concomitant]
     Dosage: 125 MCG

REACTIONS (2)
  - HAEMORRHAGIC STROKE [None]
  - HAEMORRHAGE INTRACRANIAL [None]
